FAERS Safety Report 21053364 (Version 2)
Quarter: 2022Q3

REPORT INFORMATION
  Report Type: Spontaneous
  Country: US (occurrence: US)
  Receive Date: 20220707
  Receipt Date: 20220728
  Transmission Date: 20221026
  Serious: Yes (Life-Threatening)
  Sender: FDA-Public Use
  Company Number: US-TEVA-2022-US-2052420

PATIENT
  Age: 2 Year
  Sex: Male

DRUGS (1)
  1. ARGATROBAN [Suspect]
     Active Substance: ARGATROBAN
     Indication: Anticoagulant therapy
     Route: 065

REACTIONS (2)
  - Drug ineffective [Unknown]
  - Thrombosis [Recovering/Resolving]
